FAERS Safety Report 13105523 (Version 1)
Quarter: 2017Q1

REPORT INFORMATION
  Report Type: Report from Study
  Country: BR (occurrence: BR)
  Receive Date: 20170111
  Receipt Date: 20170111
  Transmission Date: 20170428
  Serious: Yes (Death)
  Sender: FDA-Public Use
  Company Number: PHHY2017BR003606

PATIENT
  Sex: Female

DRUGS (1)
  1. FORASEQ [Suspect]
     Active Substance: BUDESONIDE\FORMOTEROL FUMARATE
     Indication: FATIGUE
     Dosage: 1 DF (FORMOTEROL FUMARATE 12 MCG, BUDESONIDE 400 MCG), Q12H
     Route: 065

REACTIONS (3)
  - Product use issue [Unknown]
  - Fatigue [Unknown]
  - Death [Fatal]
